FAERS Safety Report 25450028 (Version 2)
Quarter: 2025Q3

REPORT INFORMATION
  Report Type: Spontaneous
  Country: US (occurrence: US)
  Receive Date: 20250618
  Receipt Date: 20250704
  Transmission Date: 20251021
  Serious: No
  Sender: UNITED THERAPEUTICS
  Company Number: US-UNITED THERAPEUTICS-UNT-2025-007323

PATIENT
  Sex: Female

DRUGS (22)
  1. ORENITRAM [Suspect]
     Active Substance: TREPROSTINIL
     Indication: Pulmonary arterial hypertension
     Dosage: 0.5 MG, TID
     Dates: start: 2025, end: 2025
  2. ORENITRAM [Suspect]
     Active Substance: TREPROSTINIL
     Indication: Connective tissue disorder
     Dosage: 0.625 MG, TID
     Dates: start: 2025, end: 2025
  3. ORENITRAM [Suspect]
     Active Substance: TREPROSTINIL
     Dosage: 1.125 MG, TID
     Dates: start: 2025, end: 2025
  4. ORENITRAM [Suspect]
     Active Substance: TREPROSTINIL
     Dosage: 1.25 MG, TID
     Dates: start: 2025, end: 2025
  5. ORENITRAM [Suspect]
     Active Substance: TREPROSTINIL
     Dosage: 1.625 MG, TID
     Dates: start: 20250501, end: 202505
  6. ORENITRAM [Suspect]
     Active Substance: TREPROSTINIL
     Dosage: 1.75 MG, TID
     Dates: start: 202505, end: 202505
  7. ORENITRAM [Suspect]
     Active Substance: TREPROSTINIL
     Dosage: 1.875 MG, TID
     Dates: start: 202505, end: 2025
  8. ORENITRAM [Suspect]
     Active Substance: TREPROSTINIL
     Dosage: 1.75 MG, TID
     Dates: start: 2025, end: 2025
  9. ORENITRAM [Suspect]
     Active Substance: TREPROSTINIL
     Dosage: 1.75 MG (MORNING AND EVENING), BID
     Dates: start: 2025, end: 2025
  10. ORENITRAM [Suspect]
     Active Substance: TREPROSTINIL
     Dosage: 1 MG, BID
     Dates: start: 2025
  11. ORENITRAM [Suspect]
     Active Substance: TREPROSTINIL
  12. ORENITRAM [Suspect]
     Active Substance: TREPROSTINIL
     Indication: Pulmonary arterial hypertension
  13. ORENITRAM [Suspect]
     Active Substance: TREPROSTINIL
     Indication: Connective tissue disorder
  14. ORENITRAM [Suspect]
     Active Substance: TREPROSTINIL
     Indication: Pulmonary arterial hypertension
  15. ORENITRAM [Suspect]
     Active Substance: TREPROSTINIL
     Indication: Connective tissue disorder
  16. ORENITRAM [Suspect]
     Active Substance: TREPROSTINIL
     Indication: Pulmonary arterial hypertension
  17. ORENITRAM [Suspect]
     Active Substance: TREPROSTINIL
     Indication: Connective tissue disorder
  18. OMEPRAZOLE [Suspect]
     Active Substance: OMEPRAZOLE
     Indication: Dyschezia
     Dosage: UNK, TID
  19. OMEPRAZOLE [Suspect]
     Active Substance: OMEPRAZOLE
     Indication: Gastrointestinal disorder
     Dosage: 20 MG (AT NIGHT AND IN THE MORNING), BID
  20. LASIX [Suspect]
     Active Substance: FUROSEMIDE
     Indication: Oedema
  21. LASIX [Suspect]
     Active Substance: FUROSEMIDE
     Indication: Peripheral swelling
  22. OPSUMIT [Concomitant]
     Active Substance: MACITENTAN
     Indication: Pulmonary arterial hypertension

REACTIONS (19)
  - Faeces soft [Unknown]
  - Dyspepsia [Not Recovered/Not Resolved]
  - Fatigue [Not Recovered/Not Resolved]
  - Circadian rhythm sleep disorder [Not Recovered/Not Resolved]
  - Constipation [Recovering/Resolving]
  - Abdominal distension [Unknown]
  - Abdominal discomfort [Unknown]
  - Flatulence [Unknown]
  - Haemorrhoids [Not Recovered/Not Resolved]
  - Insomnia [Unknown]
  - Defaecation urgency [Recovering/Resolving]
  - Dyschezia [Recovering/Resolving]
  - Gastrointestinal disorder [Unknown]
  - Abdominal pain upper [Unknown]
  - Product communication issue [Not Recovered/Not Resolved]
  - Inappropriate schedule of product administration [Not Recovered/Not Resolved]
  - Product use issue [Recovering/Resolving]
  - Patient dissatisfaction with treatment [Unknown]
  - Therapy non-responder [Unknown]

NARRATIVE: CASE EVENT DATE: 20250101
